FAERS Safety Report 4533409-6 (Version None)
Quarter: 2004Q4

REPORT INFORMATION
  Report Type: 
  Country: None (occurrence: None)
  Receive Date: 20041210
  Receipt Date: 20040826
  Transmission Date: 20050328
  Serious: Yes (Life-Threatening, Hospitalization, Other)
  Sender: FDA-Public Use
  Company Number: 2004-00416

PATIENT
  Age: 65 Year
  Sex: Female
  Weight: 73.5 kg

DRUGS (13)
  1. VELCADE [Suspect]
     Indication: MULTIPLE MYELOMA
     Dosage: 2.21 MG, INTRAVENOUS
     Route: 042
     Dates: start: 20040803, end: 20040825
  2. MS CONTIN [Concomitant]
  3. VICODIN (PARACETAMOL, HYDROCOCDONE BITARTRATE) [Concomitant]
  4. LASIX [Concomitant]
  5. PERI-COLACE [Concomitant]
  6. POTASSIUM (POTASSIUM) [Concomitant]
  7. METFORMIN (METFORMIN) [Concomitant]
  8. NEXIUM [Concomitant]
  9. LIPITOR [Concomitant]
  10. THEOPHYLLINE [Concomitant]
  11. ZOLOFT [Concomitant]
  12. REGLAN [Concomitant]
  13. SINGULAIR [Concomitant]

REACTIONS (2)
  - CONVULSION [None]
  - RESPIRATORY FAILURE [None]
